FAERS Safety Report 6820689-7 (Version None)
Quarter: 2010Q3

REPORT INFORMATION
  Report Type: 
  Country: None (occurrence: None)
  Receive Date: 20100707
  Receipt Date: 20100624
  Transmission Date: 20110219
  Serious: Yes (Other)
  Sender: FDA-Public Use
  Company Number: AU-ELI_LILLY_AND_COMPANY-AU201005001135

PATIENT
  Age: 74 Year
  Sex: Male
  Weight: 112 kg

DRUGS (5)
  1. CYMBALTA [Suspect]
     Indication: DEPRESSION
     Dosage: 30 MG, DAILY (1/D)
     Route: 048
     Dates: start: 20100317
  2. CYMBALTA [Suspect]
     Dosage: 60 MG, DAILY (1/D)
     Route: 048
     Dates: end: 20100417
  3. EPILIM [Concomitant]
     Dosage: UNK, UNKNOWN
     Route: 065
     Dates: end: 20100101
  4. PREDNISOLONE [Concomitant]
     Indication: POLYMYALGIA RHEUMATICA
     Dosage: 7.5 MG,
     Route: 065
  5. PLAQUENIL [Concomitant]
     Indication: POLYMYALGIA RHEUMATICA
     Dosage: 200 MG, 2/D
     Route: 065

REACTIONS (3)
  - DIZZINESS [None]
  - FALL [None]
  - LUMBAR VERTEBRAL FRACTURE [None]
